FAERS Safety Report 6960589-5 (Version None)
Quarter: 2010Q3

REPORT INFORMATION
  Report Type: 
  Country: None (occurrence: None)
  Receive Date: 20100901
  Receipt Date: 20100824
  Transmission Date: 20110219
  Serious: Yes (Life-Threatening, Disabling)
  Sender: FDA-Public Use
  Company Number: GB-PFIZER INC-2010106823

PATIENT
  Age: 27 Year
  Sex: Female
  Weight: 67 kg

DRUGS (8)
  1. CHAMPIX [Suspect]
     Dosage: UNK
     Dates: end: 20091001
  2. AUGMENTIN '125' [Concomitant]
     Dosage: 1 DF, UNK
     Route: 048
     Dates: start: 20091130
  3. CEFALEXIN [Concomitant]
     Dosage: 1 DF, UNK
     Route: 048
     Dates: start: 20091116
  4. CIPROXIN [Concomitant]
     Indication: LOWER RESPIRATORY TRACT INFECTION
     Dosage: 250 MG, UNK
     Route: 048
     Dates: start: 20091211
  5. DICLOFENAC [Concomitant]
     Dosage: UNK
     Dates: start: 20091023
  6. FLUVOXAMINE [Concomitant]
     Dosage: UNK
     Dates: start: 20091008
  7. OSELTAMIVIR [Concomitant]
     Dosage: UNK
     Dates: start: 20091030
  8. PREDNISOLONE [Concomitant]
     Dosage: 30 MG, UNK
     Route: 048
     Dates: start: 20091211

REACTIONS (1)
  - THYMOMA [None]
